FAERS Safety Report 10613033 (Version 1)
Quarter: 2014Q4

REPORT INFORMATION
  Report Type: Spontaneous
  Country: VE (occurrence: VE)
  Receive Date: 20141127
  Receipt Date: 20141127
  Transmission Date: 20150529
  Serious: Yes (Hospitalization)
  Sender: FDA-Public Use
  Company Number: PHHY2014VE155570

PATIENT
  Sex: Male

DRUGS (3)
  1. QUETIAZIC [Concomitant]
     Indication: SLEEP DISORDER
     Dosage: 100 MG, QHS (AT NIGHT TIME)
     Route: 065
  2. TRILEPTAL [Suspect]
     Active Substance: OXCARBAZEPINE
     Indication: SEIZURE
     Dosage: 1800 MG, QD
     Route: 048
  3. OMEPRAZOLE. [Concomitant]
     Active Substance: OMEPRAZOLE
     Indication: PROPHYLAXIS
     Dosage: UNK UNK, QD
     Route: 065

REACTIONS (2)
  - Appendix disorder [Recovering/Resolving]
  - Seizure [Recovering/Resolving]
